FAERS Safety Report 7267364-5 (Version None)
Quarter: 2011Q1

REPORT INFORMATION
  Report Type: 
  Country: None (occurrence: None)
  Receive Date: 20110201
  Receipt Date: 20100623
  Transmission Date: 20110831
  Serious: No
  Sender: FDA-Public Use
  Company Number: A0866770A

PATIENT
  Age: 60 Year
  Sex: Female

DRUGS (5)
  1. ARIXTRA [Suspect]
     Indication: ANTIPHOSPHOLIPID SYNDROME
     Dosage: 10MG PER DAY
     Route: 058
     Dates: start: 20060101
  2. ZOLOFT [Concomitant]
  3. ASPIRIN [Concomitant]
  4. KAPIDEX [Concomitant]
  5. TOPROL-XL [Concomitant]

REACTIONS (1)
  - HEART RATE IRREGULAR [None]
